FAERS Safety Report 16473833 (Version 3)
Quarter: 2019Q3

REPORT INFORMATION
  Report Type: Spontaneous
  Country: JP (occurrence: JP)
  Receive Date: 20190625
  Receipt Date: 20190828
  Transmission Date: 20191004
  Serious: Yes (Death, Life-Threatening, Other)
  Sender: FDA-Public Use
  Company Number: JP-ELI_LILLY_AND_COMPANY-JP201906010476

PATIENT
  Sex: Female
  Weight: 56 kg

DRUGS (4)
  1. VERZENIO [Suspect]
     Active Substance: ABEMACICLIB
     Indication: BREAST CANCER STAGE IV
     Dosage: 150 MG, BID
     Route: 048
     Dates: start: 20190403, end: 20190523
  2. LETROZOLE. [Concomitant]
     Active Substance: LETROZOLE
     Indication: BREAST CANCER STAGE IV
     Dosage: 2.5 MG, DAILY
     Route: 048
     Dates: start: 20181212, end: 20190523
  3. LOXONIN [Concomitant]
     Active Substance: LOXOPROFEN SODIUM
  4. LOPEMID [Concomitant]
     Active Substance: LOPERAMIDE HYDROCHLORIDE
     Dosage: 1 MG, UNKNOWN
     Route: 048

REACTIONS (8)
  - Tremor [Unknown]
  - Ventricular fibrillation [Fatal]
  - Seizure [Unknown]
  - Hepatic function abnormal [Unknown]
  - Ventricular fibrillation [Unknown]
  - Death [Fatal]
  - Nausea [Unknown]
  - Pyrexia [Unknown]

NARRATIVE: CASE EVENT DATE: 20190523
